FAERS Safety Report 10004604 (Version 2)
Quarter: 2014Q2

REPORT INFORMATION
  Report Type: Spontaneous
  Country: US (occurrence: US)
  Receive Date: 20140312
  Receipt Date: 20140430
  Transmission Date: 20141212
  Serious: Yes (Other)
  Sender: FDA-Public Use
  Company Number: US-FRI-1000060561

PATIENT
  Age: 88 Year
  Sex: Male

DRUGS (5)
  1. BYSTOLIC [Suspect]
     Dosage: 5 MG
     Route: 048
     Dates: end: 2014
  2. BABY ASPIRIN [Concomitant]
  3. OMEGA-3 [Concomitant]
     Indication: MACULAR DEGENERATION
  4. CALCIUM WITH VITAMIN D [Concomitant]
  5. TYLENOL [Concomitant]

REACTIONS (6)
  - Nephrolithiasis [Not Recovered/Not Resolved]
  - Kidney infection [Unknown]
  - Heart rate increased [Recovering/Resolving]
  - Dyspnoea [Not Recovered/Not Resolved]
  - Fatigue [Not Recovered/Not Resolved]
  - Dizziness [Not Recovered/Not Resolved]
